FAERS Safety Report 7524930-7 (Version None)
Quarter: 2011Q2

REPORT INFORMATION
  Report Type: 
  Country: None (occurrence: None)
  Receive Date: 20110526
  Receipt Date: 20110514
  Transmission Date: 20111010
  Serious: Yes (Hospitalization)
  Sender: FDA-Public Use
  Company Number: 2011AP000999

PATIENT
  Age: 45 Year
  Sex: Female

DRUGS (11)
  1. PANTOPRAZOLE [Concomitant]
  2. LEVETIRACETAM [Suspect]
     Indication: PARTIAL SEIZURES
     Dosage: 500 MG, BID
  3. METHIMAZOLE [Concomitant]
  4. SALBUTAMOL SULFATE W/IPRATROPIUM [Concomitant]
  5. ATENOLOL [Concomitant]
  6. FEXOFENADINE [Concomitant]
  7. OXYGEN [Concomitant]
  8. DEXTROPROPOXYPHENE [Concomitant]
  9. ACETAMINOPHEN [Concomitant]
  10. ALENDRONATE SODIUM [Concomitant]
  11. INSULIN [Concomitant]

REACTIONS (1)
  - ACUTE GENERALISED EXANTHEMATOUS PUSTULOSIS [None]
